FAERS Safety Report 9443092 (Version 1)
Quarter: 2013Q3

REPORT INFORMATION
  Report Type: Spontaneous
  Country: US (occurrence: US)
  Receive Date: 20130806
  Receipt Date: 20130806
  Transmission Date: 20140515
  Serious: No
  Sender: FDA-Public Use
  Company Number: US-009507513-1307USA011736

PATIENT
  Sex: Female
  Weight: 107.48 kg

DRUGS (10)
  1. VICTRELIS [Suspect]
     Indication: HEPATITIS C
     Dosage: 4 CAPSULES BY MOUTH THREE TIMES A DAY
     Route: 048
  2. PEGASYS [Suspect]
     Dosage: 180 MCG/M
  3. REBETOL [Suspect]
     Dosage: UNK
     Route: 048
  4. LEVOTHYROXINE SODIUM [Concomitant]
  5. NORCO [Concomitant]
  6. KLONOPIN [Concomitant]
  7. EXCEDRIN (ACETAMINOPHEN (+) ASPIRIN (+) CAFFEINE) [Concomitant]
     Indication: MIGRAINE
  8. TYLENOL [Concomitant]
  9. VALTREX [Concomitant]
  10. BENTYL [Concomitant]

REACTIONS (3)
  - Fatigue [Unknown]
  - Nausea [Unknown]
  - Irritability [Unknown]
